FAERS Safety Report 23865467 (Version 1)
Quarter: 2024Q2

REPORT INFORMATION
  Report Type: Spontaneous
  Country: GB (occurrence: GB)
  Receive Date: 20240517
  Receipt Date: 20240517
  Transmission Date: 20240716
  Serious: Yes (Hospitalization)
  Sender: FDA-Public Use
  Company Number: None

PATIENT
  Age: 74 Year
  Sex: Female
  Weight: 58 kg

DRUGS (1)
  1. TOCILIZUMAB [Suspect]
     Active Substance: TOCILIZUMAB
     Indication: Product used for unknown indication
     Route: 058
     Dates: start: 20240315

REACTIONS (4)
  - Pulmonary embolism [Recovering/Resolving]
  - Dyspnoea [Unknown]
  - Peripheral swelling [Unknown]
  - Tachycardia [Unknown]

NARRATIVE: CASE EVENT DATE: 20240330
